FAERS Safety Report 26185956 (Version 1)
Quarter: 2025Q4

REPORT INFORMATION
  Report Type: Spontaneous
  Country: US (occurrence: None)
  Receive Date: 20251220
  Receipt Date: 20251220
  Transmission Date: 20260118
  Serious: Yes (Hospitalization)
  Sender: FDA-CTU
  Company Number: None

PATIENT
  Age: 88 Year
  Sex: Female
  Weight: 64.35 kg

DRUGS (1)
  1. FASENRA [Suspect]
     Active Substance: BENRALIZUMAB
     Indication: Asthma

REACTIONS (12)
  - Brain fog [None]
  - Confusional state [None]
  - Back pain [None]
  - Chest discomfort [None]
  - Hypopnoea [None]
  - Memory impairment [None]
  - Urinary tract infection [None]
  - Oral candidiasis [None]
  - Gastrointestinal candidiasis [None]
  - Leukopenia [None]
  - Oxygen saturation decreased [None]
  - Product ineffective [None]

NARRATIVE: CASE EVENT DATE: 20251106
